FAERS Safety Report 7691763-0 (Version None)
Quarter: 2011Q3

REPORT INFORMATION
  Report Type: 
  Country: None (occurrence: None)
  Receive Date: 20110818
  Receipt Date: 20110815
  Transmission Date: 20111222
  Serious: Yes (Disabling)
  Sender: FDA-Public Use
  Company Number: DK-GLAXOSMITHKLINE-B0740623A

PATIENT
  Sex: Female
  Weight: 51 kg

DRUGS (2)
  1. CYMBALTA [Concomitant]
     Indication: DEPRESSION
     Route: 065
  2. LAMICTAL [Suspect]
     Indication: DEPRESSION
     Dosage: 100MG TWICE PER DAY
     Route: 048
     Dates: start: 20110201, end: 20110725

REACTIONS (3)
  - TINNITUS [None]
  - DISTURBANCE IN ATTENTION [None]
  - MEMORY IMPAIRMENT [None]
